FAERS Safety Report 15574297 (Version 23)
Quarter: 2020Q4

REPORT INFORMATION
  Report Type: Spontaneous
  Country: US (occurrence: US)
  Receive Date: 20181101
  Receipt Date: 20201112
  Transmission Date: 20210113
  Serious: Yes (Hospitalization, Other)
  Sender: FDA-Public Use
  Company Number: US-ELI_LILLY_AND_COMPANY-US201810014478

PATIENT
  Age: 54 Year
  Sex: Female

DRUGS (1)
  1. TRULICITY [Suspect]
     Active Substance: DULAGLUTIDE
     Indication: BLOOD GLUCOSE INCREASED
     Dosage: UNK, WEEKLY (1/W)
     Route: 065
     Dates: start: 2016

REACTIONS (14)
  - General physical health deterioration [Unknown]
  - Fatigue [Unknown]
  - Thyroid neoplasm [Not Recovered/Not Resolved]
  - Blood glucose abnormal [Unknown]
  - Pancreatic carcinoma [Unknown]
  - Malabsorption [Unknown]
  - Vocal cord paralysis [Unknown]
  - Obstructive airways disorder [Unknown]
  - Blood glucose increased [Unknown]
  - Blood glucose decreased [Unknown]
  - Hypoglycaemic unconsciousness [Unknown]
  - Pancreatitis [Unknown]
  - Sleep deficit [Unknown]
  - Discomfort [Unknown]

NARRATIVE: CASE EVENT DATE: 2016
